FAERS Safety Report 8808594 (Version 1)
Quarter: 2012Q4

REPORT INFORMATION
  Report Type: 
  Country: US (occurrence: US)
  Receive Date: 20120926
  Receipt Date: 20120926
  Transmission Date: 20130627
  Serious: No
  Sender: FDA-Public Use
  Company Number: US-PFIZER INC-2012237096

PATIENT
  Age: 65 Year
  Sex: Female
  Weight: 63.49 kg

DRUGS (3)
  1. LYRICA [Suspect]
     Indication: NEUROPATHY PERIPHERAL
     Dosage: 50 mg, 1x/day
     Route: 048
     Dates: start: 20120917, end: 20120922
  2. PREMARIN [Concomitant]
     Dosage: 0.9 mg, UNK
     Dates: start: 1975
  3. CRESTOR [Concomitant]
     Dosage: 5 mg, UNK

REACTIONS (3)
  - Drug ineffective [Unknown]
  - Pain in extremity [Unknown]
  - Rash [Not Recovered/Not Resolved]
